FAERS Safety Report 4854502-4 (Version None)
Quarter: 2005Q4

REPORT INFORMATION
  Report Type: 
  Country: None (occurrence: None)
  Receive Date: 20051215
  Receipt Date: 20050929
  Transmission Date: 20060501
  Serious: Yes (Hospitalization)
  Sender: FDA-Public Use
  Company Number: 2005CG01666

PATIENT
  Age: 27534 Day
  Sex: Female
  Weight: 85 kg

DRUGS (6)
  1. CRESTOR [Suspect]
     Indication: DYSLIPIDAEMIA
     Route: 048
     Dates: start: 20050701, end: 20050902
  2. CORDARONE [Suspect]
     Indication: ARRHYTHMIA
     Route: 048
     Dates: start: 20050701, end: 20050914
  3. CORDARONE [Suspect]
     Indication: ATRIAL FIBRILLATION
     Route: 048
     Dates: start: 20050701, end: 20050914
  4. AMLOR [Suspect]
     Indication: HYPERTENSION
     Route: 048
     Dates: start: 20050701, end: 20050902
  5. CAPTOPRIL [Concomitant]
     Indication: CARDIAC FAILURE
     Route: 048
     Dates: start: 20030101
  6. ASPEGIC 325 [Concomitant]
     Indication: THROMBOSIS PROPHYLAXIS
     Route: 048
     Dates: start: 20030101

REACTIONS (1)
  - LEUKOCYTOCLASTIC VASCULITIS [None]
